FAERS Safety Report 7973223-2 (Version None)
Quarter: 2011Q4

REPORT INFORMATION
  Report Type: 
  Country: None (occurrence: None)
  Receive Date: 20111213
  Receipt Date: 20111206
  Transmission Date: 20120403
  Serious: No
  Sender: FDA-Public Use
  Company Number: PHEH2011US011101

PATIENT
  Age: 54 Year
  Sex: Male
  Weight: 93.4 kg

DRUGS (16)
  1. POTASSIUM CHLORIDE [Concomitant]
  2. TRAZODONE HCL [Concomitant]
  3. ASPIRIN [Concomitant]
  4. TASIGNA [Suspect]
     Indication: CHRONIC MYELOID LEUKAEMIA
     Dosage: 200 MG, BID
     Route: 048
     Dates: start: 20100701
  5. SPIRONOLACTONE [Concomitant]
  6. LIDODERM [Concomitant]
  7. GABAPENTIN [Concomitant]
  8. NASONEX [Concomitant]
  9. XANAX [Concomitant]
  10. MORPHINE [Concomitant]
  11. CELEXA [Concomitant]
  12. METOPROLOL TARTRATE [Concomitant]
  13. MIRALAX [Concomitant]
  14. OXYCODONE HCL [Concomitant]
  15. METFORMIN HCL [Concomitant]
  16. CRESTOR [Concomitant]

REACTIONS (2)
  - SWELLING [None]
  - FLUID RETENTION [None]
